FAERS Safety Report 16382440 (Version 1)
Quarter: 2019Q2

REPORT INFORMATION
  Report Type: Spontaneous
  Country: FR (occurrence: FR)
  Receive Date: 20190603
  Receipt Date: 20190603
  Transmission Date: 20190711
  Serious: Yes (Hospitalization)
  Sender: FDA-Public Use
  Company Number: FR-TEVA-2019-FR-1057087

PATIENT
  Age: 79 Year
  Sex: Male
  Weight: 63.3 kg

DRUGS (8)
  1. GABAPENTINE [Concomitant]
     Active Substance: GABAPENTIN
  2. COVERAM [Concomitant]
     Active Substance: AMLODIPINE\PERINDOPRIL
  3. UROREC [Concomitant]
     Active Substance: SILODOSIN
  4. LORMETAZEPAM ARROW 2 MG, SCORED TABLET [Suspect]
     Active Substance: LORMETAZEPAM
     Indication: ANXIETY
     Dosage: 1 DOSAGE FORMS DAILY;
     Route: 048
     Dates: start: 20190418, end: 20190421
  5. TRILEPTAL 300 MG FILM-COATED TABLETS [Concomitant]
  6. KARDEGIC [Concomitant]
     Active Substance: ASPIRIN DL-LYSINE
  7. ESCITALOPRAM [Suspect]
     Active Substance: ESCITALOPRAM OXALATE
     Indication: ANXIETY
     Dosage: 5 MILLIGRAM DAILY;
     Route: 048
     Dates: start: 201902, end: 20190423
  8. SIMVASTATINE [Concomitant]
     Active Substance: SIMVASTATIN

REACTIONS (1)
  - Epilepsy [Recovered/Resolved]

NARRATIVE: CASE EVENT DATE: 20190421
